FAERS Safety Report 23257980 (Version 1)
Quarter: 2023Q4

REPORT INFORMATION
  Report Type: Spontaneous
  Country: SA (occurrence: SA)
  Receive Date: 20231204
  Receipt Date: 20231204
  Transmission Date: 20240109
  Serious: Yes (Other)
  Sender: FDA-Public Use
  Company Number: SA-002147023-NVSC2023SA253167

PATIENT
  Age: 30 Year
  Sex: Male

DRUGS (1)
  1. TOBRADEX [Suspect]
     Active Substance: DEXAMETHASONE\TOBRAMYCIN
     Indication: Pruritus
     Dosage: UNK (3 TIMES DAILY FOR 11 DAYS)
     Route: 065

REACTIONS (2)
  - Vision blurred [Unknown]
  - Product administration error [Unknown]
